FAERS Safety Report 23840735 (Version 2)
Quarter: 2025Q2

REPORT INFORMATION
  Report Type: Spontaneous
  Country: DE (occurrence: DE)
  Receive Date: 20240510
  Receipt Date: 20250421
  Transmission Date: 20250717
  Serious: Yes (Other)
  Sender: AUROBINDO
  Company Number: DE-002147023-NVSC2021DE056869

PATIENT
  Sex: Female
  Weight: 75 kg

DRUGS (6)
  1. EXEMESTANE [Suspect]
     Active Substance: EXEMESTANE
     Indication: Breast cancer metastatic
     Dosage: 25 MILLIGRAM, ONCE A DAY
     Route: 048
     Dates: start: 20190809
  2. KISQALI [Suspect]
     Active Substance: RIBOCICLIB SUCCINATE
     Indication: Breast cancer metastatic
     Dosage: 600 MILLIGRAM, ONCE A DAY(QD (ADMINISTRATION SCHEME 21 DAYS INTAKE, 7 DAYS PAUSE) )
     Route: 048
     Dates: start: 20190809, end: 20191128
  3. KISQALI [Suspect]
     Active Substance: RIBOCICLIB SUCCINATE
     Dosage: 400 MILLIGRAM, ONCE A DAY (400 MG, QD, (SCHEMA 21 DAYS INTAKE THAN 7 DAYS PAUSE))
     Route: 048
     Dates: start: 20191129, end: 20210804
  4. KISQALI [Suspect]
     Active Substance: RIBOCICLIB SUCCINATE
     Dosage: 600 MILLIGRAM, ONCE A DAY(QD (ADMINISTRATION SCHEME 21 DAYS INTAKE, 7 DAYS PAUSE) )
     Route: 048
     Dates: start: 20210814
  5. KISQALI [Suspect]
     Active Substance: RIBOCICLIB SUCCINATE
     Dosage: 400 MILLIGRAM, ONCE A DAY (600 MG, QD (SCHEMA 21 DAYS INTAKE THAN 7 DAYS PAUSE))
     Route: 048
     Dates: start: 20210814
  6. KISQALI [Suspect]
     Active Substance: RIBOCICLIB SUCCINATE
     Dosage: 200 MILLIGRAM, ONCE A DAY
     Route: 065
     Dates: start: 20231229, end: 20240206

REACTIONS (5)
  - Anaemia [Not Recovered/Not Resolved]
  - Cardiac failure [Not Recovered/Not Resolved]
  - Dyspnoea exertional [Not Recovered/Not Resolved]
  - Constipation [Not Recovered/Not Resolved]
  - Diarrhoea [Recovered/Resolved]

NARRATIVE: CASE EVENT DATE: 20190829
